FAERS Safety Report 12350476 (Version 1)
Quarter: 2016Q2

REPORT INFORMATION
  Report Type: Spontaneous
  Country: NO (occurrence: NO)
  Receive Date: 20160510
  Receipt Date: 20160510
  Transmission Date: 20160815
  Serious: Yes (Life-Threatening, Hospitalization, Other)
  Sender: FDA-Public Use
  Company Number: NO-GLAXOSMITHKLINE-NO2016GSK064680

PATIENT
  Age: 23 Year
  Sex: Male
  Weight: 100 kg

DRUGS (1)
  1. VOLTAREN [Suspect]
     Active Substance: DICLOFENAC SODIUM
     Indication: PAIN IN EXTREMITY
     Dosage: 50 MG, TID
     Route: 065
     Dates: start: 20160126, end: 20160209

REACTIONS (11)
  - Infection [Not Recovered/Not Resolved]
  - Palpitations [Not Recovered/Not Resolved]
  - Cardiac failure [Not Recovered/Not Resolved]
  - Inflammation [Not Recovered/Not Resolved]
  - Myocardial infarction [Not Recovered/Not Resolved]
  - Gastric perforation [Not Recovered/Not Resolved]
  - Sepsis [Not Recovered/Not Resolved]
  - Nerve injury [Not Recovered/Not Resolved]
  - Dyspnoea [Not Recovered/Not Resolved]
  - Blood pressure decreased [Not Recovered/Not Resolved]
  - Renal failure [Not Recovered/Not Resolved]

NARRATIVE: CASE EVENT DATE: 20160126
